FAERS Safety Report 5599079-3 (Version None)
Quarter: 2008Q1

REPORT INFORMATION
  Report Type: 
  Country: None (occurrence: None)
  Receive Date: 20080122
  Receipt Date: 20080116
  Transmission Date: 20080703
  Serious: Yes (Disabling)
  Sender: FDA-Public Use
  Company Number: GB-BOEHRINGER INGELHEIM PHARMACEUTICALS, INC.-2007-DE-06633GD

PATIENT
  Age: 54 Year
  Sex: Female

DRUGS (2)
  1. TIOTROPIUM-BROMIDE [Suspect]
     Indication: CHRONIC OBSTRUCTIVE PULMONARY DISEASE
     Route: 055
     Dates: start: 20031121
  2. CORTICOSTEROIDS [Concomitant]
     Route: 055
     Dates: start: 19940101

REACTIONS (1)
  - LOWER LIMB FRACTURE [None]
